FAERS Safety Report 5258882-X (Version None)
Quarter: 2007Q1

REPORT INFORMATION
  Report Type: 
  Country: None (occurrence: None)
  Receive Date: 20070308
  Receipt Date: 20070225
  Transmission Date: 20070707
  Serious: Yes (Hospitalization)
  Sender: FDA-Public Use
  Company Number: CN-MERCK-0702CHN00018

PATIENT
  Age: 82 Year
  Sex: Male

DRUGS (6)
  1. CANCIDAS [Suspect]
     Indication: FUNGAL INFECTION
     Route: 042
     Dates: start: 20070209, end: 20070209
  2. CANCIDAS [Suspect]
     Route: 042
     Dates: start: 20070210, end: 20070220
  3. PERDIPINE [Concomitant]
     Indication: HYPERTENSION
     Route: 042
     Dates: start: 20070131, end: 20070214
  4. [COMPOSITION UNSPECIFIED] [Concomitant]
     Indication: SYSTEMIC INFLAMMATORY RESPONSE SYNDROME
     Route: 042
     Dates: start: 20070120
  5. LEVOCARNITINE [Concomitant]
     Indication: NUTRITIONAL SUPPORT
     Route: 042
     Dates: start: 20070120
  6. DIAMMONIUM GLYCYRRHIZINATE [Concomitant]
     Indication: HEPATIC FUNCTION ABNORMAL
     Route: 042
     Dates: start: 20070206

REACTIONS (2)
  - ACTIVATED PARTIAL THROMBOPLASTIN TIME PROLONGED [None]
  - GASTROINTESTINAL HAEMORRHAGE [None]
